FAERS Safety Report 13536060 (Version 1)
Quarter: 2017Q2

REPORT INFORMATION
  Report Type: Spontaneous
  Country: US (occurrence: US)
  Receive Date: 20170511
  Receipt Date: 20170511
  Transmission Date: 20170830
  Serious: No
  Sender: FDA-Public Use
  Company Number: US-GLENMARK PHARMACEUTICALS-2016GMK023861

PATIENT

DRUGS (2)
  1. LISINOPRIL. [Concomitant]
     Active Substance: LISINOPRIL
     Indication: PRODUCT USED FOR UNKNOWN INDICATION
     Dosage: UNK
     Route: 065
     Dates: start: 201505
  2. TOPIRAMATE. [Suspect]
     Active Substance: TOPIRAMATE
     Indication: BACK PAIN
     Dosage: 50 MG, BID
     Route: 048
     Dates: start: 20160603, end: 20160604

REACTIONS (4)
  - Adverse event [Recovered/Resolved]
  - Burning sensation [Recovered/Resolved]
  - Arthralgia [Recovered/Resolved]
  - Product use in unapproved indication [Unknown]

NARRATIVE: CASE EVENT DATE: 20160603
